FAERS Safety Report 5607812-7 (Version None)
Quarter: 2008Q1

REPORT INFORMATION
  Report Type: 
  Country: None (occurrence: None)
  Receive Date: 20080111
  Receipt Date: 20070928
  Transmission Date: 20080703
  Serious: Yes (Hospitalization)
  Sender: FDA-Public Use
  Company Number: HQWYE169012MAY03

PATIENT
  Age: 58 Year
  Sex: Female

DRUGS (5)
  1. PREMPRO [Suspect]
     Dosage: ORAL
     Route: 048
  2. ESTROGENS SOL/INJ [Suspect]
  3. MEDROXYPROGESTERONE [Suspect]
  4. PREMARIN [Suspect]
  5. PROVERA [Suspect]

REACTIONS (2)
  - PULMONARY EMBOLISM [None]
  - THROMBOSIS [None]
